FAERS Safety Report 21185065 (Version 1)
Quarter: 2022Q3

REPORT INFORMATION
  Report Type: Spontaneous
  Country: CA (occurrence: CA)
  Receive Date: 20220808
  Receipt Date: 20220808
  Transmission Date: 20221026
  Serious: Yes (Hospitalization, Other)
  Sender: FDA-Public Use
  Company Number: CA-BAXTER-2022BAX016513

PATIENT
  Age: 48 Year
  Sex: Female
  Weight: 106 kg

DRUGS (84)
  1. CYCLOPHOSPHAMIDE [Suspect]
     Active Substance: CYCLOPHOSPHAMIDE
     Indication: Tardive dyskinesia
     Dosage: UNK
     Route: 065
  2. CYCLOPHOSPHAMIDE [Suspect]
     Active Substance: CYCLOPHOSPHAMIDE
     Indication: Breast cancer
     Dosage: 1360 MG, 1 EVERY 2 WEEKS, IV NOS
     Route: 042
  3. CYCLOPHOSPHAMIDE [Suspect]
     Active Substance: CYCLOPHOSPHAMIDE
     Dosage: 1360 MG, IV NOS
     Route: 042
  4. CYCLOPHOSPHAMIDE [Suspect]
     Active Substance: CYCLOPHOSPHAMIDE
     Dosage: IV NOS
     Route: 042
  5. CYCLOPHOSPHAMIDE [Suspect]
     Active Substance: CYCLOPHOSPHAMIDE
     Dosage: DOSAGE FORM: NOT SPECIFIED, 1360 MG, 1 EVERY 2 WEEKS IV NOS
     Route: 042
  6. ACETAMINOPHEN AND CODEINE [Suspect]
     Active Substance: ACETAMINOPHEN\CODEINE PHOSPHATE
     Indication: Tardive dyskinesia
     Dosage: 30 MG, 1 EVERY 1 DAY
     Route: 065
  7. ACETAMINOPHEN AND CODEINE [Suspect]
     Active Substance: ACETAMINOPHEN\CODEINE PHOSPHATE
     Dosage: 30 MG, 1 EVERY 4 HOURS
     Route: 065
  8. ACETAMINOPHEN AND CODEINE [Suspect]
     Active Substance: ACETAMINOPHEN\CODEINE PHOSPHATE
     Dosage: UNK
     Route: 065
  9. BETAMETHASONE [Suspect]
     Active Substance: BETAMETHASONE
     Indication: Tardive dyskinesia
     Dosage: 2 EVERY 1 DAY
     Route: 065
  10. BETAMETHASONE [Suspect]
     Active Substance: BETAMETHASONE
     Dosage: UNK
     Route: 048
  11. BETAMETHASONE [Suspect]
     Active Substance: BETAMETHASONE
     Dosage: EVERY 12 HOURS
     Route: 048
  12. DEXAMETHASONE [Suspect]
     Active Substance: DEXAMETHASONE
     Indication: Supportive care
     Dosage: 20 MG, 1 EVERY 1 DAYS
     Route: 048
  13. DEXAMETHASONE [Suspect]
     Active Substance: DEXAMETHASONE
     Dosage: DOSAGEFORM NOT SPECIFIED, 20 MG, 1 EVERY 1 DAYS
     Route: 048
  14. DEXAMETHASONE [Suspect]
     Active Substance: DEXAMETHASONE
     Dosage: UNK
     Route: 048
  15. DEXAMETHASONE [Suspect]
     Active Substance: DEXAMETHASONE
     Dosage: 20 MG, 1 EVERY 1 DAYS
     Route: 048
  16. DOXORUBICIN [Suspect]
     Active Substance: DOXORUBICIN
     Indication: Breast cancer
     Dosage: IV NOS
     Route: 042
  17. DOXORUBICIN [Suspect]
     Active Substance: DOXORUBICIN
     Dosage: 136 MG, IV NOS
     Route: 042
  18. DOXORUBICIN [Suspect]
     Active Substance: DOXORUBICIN
     Dosage: 136 MG,1 EVERY 2 WEEKS, IV NOS
     Route: 042
  19. DOXORUBICIN [Suspect]
     Active Substance: DOXORUBICIN
     Indication: Breast cancer
     Dosage: DOSAGE FORM: SOLUTION INTRAVENOUS, IV NOS, 136 MG, 1 EVERY 2 WEEKS
     Route: 042
  20. EMEND [Suspect]
     Active Substance: APREPITANT
     Indication: Supportive care
     Dosage: 125 MG
     Route: 048
  21. EMEND [Suspect]
     Active Substance: APREPITANT
     Dosage: 125 MG, 1 EVERY 1 DAYS
     Route: 048
  22. EMEND [Suspect]
     Active Substance: APREPITANT
     Dosage: 80 MG, 1 EVERY 1 DAYS
     Route: 048
  23. EMEND [Suspect]
     Active Substance: APREPITANT
     Dosage: 80 MG, 1 EVERY 1 DAYS
     Route: 048
  24. EMEND [Suspect]
     Active Substance: APREPITANT
     Dosage: UNK
     Route: 048
  25. EMEND [Suspect]
     Active Substance: APREPITANT
     Dosage: 125 MG, 1 EVERY 1 DAYS
     Route: 048
  26. EMEND [Suspect]
     Active Substance: APREPITANT
     Dosage: 80 MG, 1 EVERY 1 DAYS
     Route: 048
  27. EMEND [Suspect]
     Active Substance: APREPITANT
     Dosage: 80 MG, 1 EVERY 1 DAYS
     Route: 048
  28. EMEND [Suspect]
     Active Substance: APREPITANT
     Dosage: UNK
     Route: 048
  29. EMEND [Suspect]
     Active Substance: APREPITANT
     Dosage: 125 MG, 1 EVERY 1 DAYS
     Route: 048
  30. EMEND [Suspect]
     Active Substance: APREPITANT
     Dosage: 80 MG, 1 EVERY 1 DAYS
     Route: 048
  31. EMEND [Suspect]
     Active Substance: APREPITANT
     Dosage: 80 MG, 1 EVERY 1 DAYS
     Route: 048
  32. EMEND [Suspect]
     Active Substance: APREPITANT
     Dosage: 125 MG, 1 EVERY 1 DAYS
     Route: 048
  33. EMEND [Suspect]
     Active Substance: APREPITANT
     Dosage: 80 MG, 1 EVERY 1 DAYS
     Route: 048
  34. ENOXAPARIN [Suspect]
     Active Substance: ENOXAPARIN
     Indication: Tardive dyskinesia
     Route: 058
  35. ENOXAPARIN [Suspect]
     Active Substance: ENOXAPARIN
     Dosage: 150 MG, 1 EVERY 1 DAYS,
     Route: 058
  36. LEVOFLOXACIN [Suspect]
     Active Substance: LEVOFLOXACIN
     Indication: Tardive dyskinesia
     Dosage: DOSAGEFORM: NOT SPECIFIED, 500 MG, 1 EVERY 1 DAYS
     Route: 048
  37. LEVOFLOXACIN [Suspect]
     Active Substance: LEVOFLOXACIN
     Dosage: 500 MG, 1 EVERY 1 DAYS
     Route: 048
  38. LEVOFLOXACIN [Suspect]
     Active Substance: LEVOFLOXACIN
     Dosage: 500 MG
     Route: 048
  39. LORAZEPAM [Suspect]
     Active Substance: LORAZEPAM
     Indication: Tardive dyskinesia
     Dosage: DOSAGEFORM: NOT SPECIFIED, 0.5MG, 2 EVERY 1 DAYS
     Route: 048
  40. LORAZEPAM [Suspect]
     Active Substance: LORAZEPAM
     Indication: Tardive dyskinesia
     Dosage: 0.5MG, 1 EVERY 1 DAYS
     Route: 048
  41. LORAZEPAM [Suspect]
     Active Substance: LORAZEPAM
     Dosage: 0.5MG, EVERY 12 HOURS
     Route: 048
  42. LORAZEPAM [Suspect]
     Active Substance: LORAZEPAM
     Dosage: 0.5MG, 2 EVERY 1 DAYS
     Route: 048
  43. LORAZEPAM [Suspect]
     Active Substance: LORAZEPAM
     Dosage: 0.5MG
     Route: 048
  44. METOCLOPRAMIDE [Suspect]
     Active Substance: METOCLOPRAMIDE
     Indication: Tardive dyskinesia
     Dosage: 10 MG, 4 EVERY 1 DAYS
     Route: 048
  45. METOCLOPRAMIDE [Suspect]
     Active Substance: METOCLOPRAMIDE
     Dosage: 10 MG, 1 EVERY 6 HOURS
     Route: 048
  46. METOCLOPRAMIDE [Suspect]
     Active Substance: METOCLOPRAMIDE
     Dosage: 10 MG, 4 EVERY 1 DAYS
     Route: 048
  47. METOCLOPRAMIDE [Suspect]
     Active Substance: METOCLOPRAMIDE
     Dosage: 10 MG, 1 EVERY 1 DAYS
     Route: 048
  48. NEULASTA [Suspect]
     Active Substance: PEGFILGRASTIM
     Indication: Supportive care
     Dosage: DOSAGEFORM: SOLUTION SUBCUTANEOUS, 6 MG
     Route: 058
  49. NEULASTA [Suspect]
     Active Substance: PEGFILGRASTIM
     Dosage: 6 MG
     Route: 058
  50. NEULASTA [Suspect]
     Active Substance: PEGFILGRASTIM
     Dosage: 6 MG, 1 EVERY 1 DAYS
     Route: 058
  51. NEULASTA [Suspect]
     Active Substance: PEGFILGRASTIM
     Dosage: 6 MG
     Route: 058
  52. NEUPOGEN [Suspect]
     Active Substance: FILGRASTIM
     Indication: Supportive care
     Dosage: 480 MICROGRAM, 1 EVERY 1 DAYS
     Route: 065
  53. NEUPOGEN [Suspect]
     Active Substance: FILGRASTIM
     Dosage: DOSAGEFORM: SOLUTION INTRAVENOUS, 480 MICROGRAM, 1 EVERY 1 DAYS
     Route: 065
  54. NEUPOGEN [Suspect]
     Active Substance: FILGRASTIM
     Dosage: 480 MICROGRAM, 1 EVERY 1 DAYS
     Route: 065
  55. NEUPOGEN [Suspect]
     Active Substance: FILGRASTIM
     Dosage: 480 MICROGRAM, 1 EVERY 1 DAYS
     Route: 048
  56. NEUPOGEN [Suspect]
     Active Substance: FILGRASTIM
     Dosage: 125 MICROGRAM, 1 EVERY 1 DAYS
     Route: 048
  57. ONDANSETRON [Suspect]
     Active Substance: ONDANSETRON
     Indication: Supportive care
     Dosage: DOSAGEFORM: NOT SPECIFIED, 8 MG, 1 EVERY 1 DAYS
     Route: 048
  58. ONDANSETRON [Suspect]
     Active Substance: ONDANSETRON
     Dosage: DOSAGEFORM: ORODISPERSIBLE FILM, 8 MG
     Route: 048
  59. ONDANSETRON [Suspect]
     Active Substance: ONDANSETRON
     Dosage: DOSAGEFORM: ORODISPERSIBLE FILM
     Route: 065
  60. ONDANSETRON [Suspect]
     Active Substance: ONDANSETRON
     Dosage: DOSAGEFORM: ORODISPERSIBLE FILM
     Route: 048
  61. ONDANSETRON [Suspect]
     Active Substance: ONDANSETRON
     Dosage: DOSAGEFORM: ORODISPERSIBLE FILM, 8 MG
     Route: 048
  62. ONDANSETRON [Suspect]
     Active Substance: ONDANSETRON
     Dosage: DOSAGEFORM: ORODISPERSIBLE FILM, 8 MG, 1 EVERY 1 DAY
     Route: 048
  63. PACLITAXEL [Suspect]
     Active Substance: PACLITAXEL
     Indication: Supportive care
     Dosage: 393 MG, 1 EVERY 1 DAY, IV NOS
     Route: 042
  64. PACLITAXEL [Suspect]
     Active Substance: PACLITAXEL
     Indication: Breast cancer
     Dosage: 393 MG, IV NOS
     Route: 042
  65. PACLITAXEL [Suspect]
     Active Substance: PACLITAXEL
     Dosage: 303 MG, IV NOS
     Route: 042
  66. PACLITAXEL [Suspect]
     Active Substance: PACLITAXEL
     Dosage: 243 MG, 1 EVERY 1 DAYS, IV NOS
     Route: 042
  67. PACLITAXEL [Suspect]
     Active Substance: PACLITAXEL
     Dosage: 303 MG, IV NOS
     Route: 042
  68. PACLITAXEL [Suspect]
     Active Substance: PACLITAXEL
     Dosage: 303 MG, IV NOS
     Route: 042
  69. PACLITAXEL [Suspect]
     Active Substance: PACLITAXEL
     Dosage: DOSAGE FORM: LIQUID INTRAVENOUS, 243 MG,  IV NOS
     Route: 042
  70. PACLITAXEL [Suspect]
     Active Substance: PACLITAXEL
     Dosage: 393 MG, IV NOS
     Route: 042
  71. RANITIDINE HYDROCHLORIDE [Suspect]
     Active Substance: RANITIDINE HYDROCHLORIDE
     Indication: Tardive dyskinesia
     Dosage: 150 MG, 1 EVERY 2 WEEKS
     Route: 048
  72. RANITIDINE HYDROCHLORIDE [Suspect]
     Active Substance: RANITIDINE HYDROCHLORIDE
     Dosage: 150 MG, 2 EVERY 1 DAYS
     Route: 048
  73. RANITIDINE HYDROCHLORIDE [Suspect]
     Active Substance: RANITIDINE HYDROCHLORIDE
     Dosage: 150 MG
     Route: 048
  74. RANITIDINE HYDROCHLORIDE [Suspect]
     Active Substance: RANITIDINE HYDROCHLORIDE
     Dosage: 150 MG, 2 EVERY 1 DAYS
     Route: 048
  75. RANITIDINE HYDROCHLORIDE [Suspect]
     Active Substance: RANITIDINE HYDROCHLORIDE
     Dosage: 150 MG, EVERY 12 HOURS
     Route: 048
  76. RANITIDINE HYDROCHLORIDE [Suspect]
     Active Substance: RANITIDINE HYDROCHLORIDE
     Dosage: UNK
     Route: 048
  77. TRASTUZUMAB [Suspect]
     Active Substance: TRASTUZUMAB
     Indication: Tardive dyskinesia
     Dosage: 866 MG, 1 EVERY 1 DAYS
     Route: 065
  78. TRASTUZUMAB [Suspect]
     Active Substance: TRASTUZUMAB
     Dosage: 866 MG
     Route: 065
  79. TRASTUZUMAB [Suspect]
     Active Substance: TRASTUZUMAB
     Dosage: 626 MG
     Route: 065
  80. TRASTUZUMAB [Suspect]
     Active Substance: TRASTUZUMAB
     Dosage: UNK
     Route: 048
  81. TRASTUZUMAB [Suspect]
     Active Substance: TRASTUZUMAB
     Dosage: 626 MG
     Route: 065
  82. TRASTUZUMAB [Suspect]
     Active Substance: TRASTUZUMAB
     Dosage: UNK
     Route: 065
  83. TRASTUZUMAB [Suspect]
     Active Substance: TRASTUZUMAB
     Dosage: 626 MG, 1 EVERY 1 DAY
     Route: 065
  84. TRASTUZUMAB [Suspect]
     Active Substance: TRASTUZUMAB
     Dosage: 626 MG
     Route: 065

REACTIONS (12)
  - Atelectasis [Recovered/Resolved]
  - Computerised tomogram thorax [Recovered/Resolved]
  - Computerised tomogram thorax abnormal [Recovered/Resolved]
  - Gastrointestinal disorder [Recovered/Resolved]
  - Off label use [Recovered/Resolved]
  - Cough [Recovered/Resolved]
  - Dyspnoea [Recovered/Resolved]
  - Fatigue [Recovered/Resolved]
  - Hypoxia [Recovered/Resolved]
  - Nausea [Recovered/Resolved]
  - Pyrexia [Recovered/Resolved]
  - Rash [Recovered/Resolved]
